FAERS Safety Report 4884900-4 (Version None)
Quarter: 2006Q1

REPORT INFORMATION
  Report Type: 
  Country: None (occurrence: None)
  Receive Date: 20060119
  Receipt Date: 20051122
  Transmission Date: 20060701
  Serious: Yes (Other)
  Sender: FDA-Public Use
  Company Number: FR-BRISTOL-MYERS SQUIBB COMPANY-13190657

PATIENT
  Age: 50 Year
  Sex: Male
  Weight: 72 kg

DRUGS (6)
  1. REYATAZ [Suspect]
     Indication: HIV INFECTION
     Route: 048
     Dates: start: 20051005
  2. EPIVIR [Concomitant]
     Indication: HIV INFECTION
     Dates: start: 20031014
  3. HIVID [Concomitant]
     Indication: HIV INFECTION
     Dates: start: 20031014
  4. TOCO [Concomitant]
     Dates: start: 19990511
  5. SELENIUM SULFIDE [Concomitant]
     Dates: start: 19990511
  6. ZESTRIL [Concomitant]
     Indication: HYPERTENSION
     Dates: start: 20020124

REACTIONS (2)
  - ATRIAL FIBRILLATION [None]
  - PALPITATIONS [None]
